FAERS Safety Report 6967515-3 (Version None)
Quarter: 2010Q3

REPORT INFORMATION
  Report Type: 
  Country: None (occurrence: None)
  Receive Date: 20100901
  Receipt Date: 20100809
  Transmission Date: 20110219
  Serious: Yes (Other)
  Sender: FDA-Public Use
  Company Number: TOR 2010-0094

PATIENT
  Age: 64 Year
  Sex: Female

DRUGS (5)
  1. FARESTON [Suspect]
     Indication: BREAST CANCER
     Dosage: 60 MG, ORAL
     Route: 048
     Dates: start: 20030101
  2. AVAPRO [Concomitant]
  3. FISH OIL [Concomitant]
  4. COENZYME Q10 [Concomitant]
  5. RHINOCORT [Concomitant]

REACTIONS (2)
  - BLOOD CREATININE INCREASED [None]
  - BLOOD UREA INCREASED [None]
